FAERS Safety Report 4639316-2 (Version None)
Quarter: 2005Q2

REPORT INFORMATION
  Report Type: 
  Country: None (occurrence: None)
  Receive Date: 20050418
  Receipt Date: 20050404
  Transmission Date: 20051028
  Serious: Yes (Hospitalization)
  Sender: FDA-Public Use
  Company Number: 2005BI003946

PATIENT
  Age: 70 Year
  Sex: Female

DRUGS (5)
  1. AVONEX [Suspect]
     Indication: MULTIPLE SCLEROSIS
     Dosage: 30 UG; QW; IM
     Route: 030
  2. PREDNISOLONE [Concomitant]
  3. TIMOLOL MALEATE [Concomitant]
  4. CHLORHEXIDINE [Concomitant]
  5. BRIMONIDINE OPHTHALMIC [Concomitant]

REACTIONS (3)
  - DIFFICULTY IN WALKING [None]
  - FALL [None]
  - HEADACHE [None]
